FAERS Safety Report 9554471 (Version 2)
Quarter: 2013Q4

REPORT INFORMATION
  Report Type: Spontaneous
  Country: US (occurrence: US)
  Receive Date: 20130925
  Receipt Date: 20131025
  Transmission Date: 20140711
  Serious: Yes (Hospitalization)
  Sender: FDA-Public Use
  Company Number: US-CELGENEUS-163-50794-13092310

PATIENT
  Age: 60 Year
  Sex: Male
  Weight: 89.36 kg

DRUGS (10)
  1. VIDAZA [Suspect]
     Indication: MYELODYSPLASTIC SYNDROME
     Dosage: 75 MILLIGRAM/SQ. METER
     Route: 058
     Dates: start: 20130723, end: 20130912
  2. ASPIRIN [Concomitant]
     Indication: HYPERTENSION
     Dosage: 81 MILLIGRAM
     Route: 065
  3. ASPIRIN [Concomitant]
     Indication: HYPERCHOLESTEROLAEMIA
  4. FINASTERIDE [Concomitant]
     Indication: PRODUCT USED FOR UNKNOWN INDICATION
     Dosage: 5 MILLIGRAM
     Route: 065
  5. FLOMAX [Concomitant]
     Indication: BENIGN PROSTATIC HYPERPLASIA
     Dosage: .4 MILLIGRAM
     Route: 048
  6. MECLIZINE [Concomitant]
     Indication: VERTIGO
     Route: 048
     Dates: start: 20130912
  7. LISINOPRIL [Concomitant]
     Indication: HYPERTENSION
     Dosage: 10 MILLIGRAM
     Route: 048
     Dates: start: 20130914
  8. FESO4 [Concomitant]
     Indication: IRON DEFICIENCY
     Dosage: 975 MILLIGRAM
     Route: 048
     Dates: start: 20120124
  9. PRAVASTATIN [Concomitant]
     Indication: HYPERCHOLESTEROLAEMIA
     Dosage: 40 MILLIGRAM
     Route: 048
  10. RITALIN [Concomitant]
     Indication: FATIGUE
     Dosage: 30 MILLIGRAM
     Route: 048
     Dates: start: 20120521

REACTIONS (2)
  - Cerebrovascular accident [Recovering/Resolving]
  - Asthenia [Recovering/Resolving]
